FAERS Safety Report 18387405 (Version 2)
Quarter: 2022Q1

REPORT INFORMATION
  Report Type: Spontaneous
  Country: US (occurrence: US)
  Receive Date: 20201015
  Receipt Date: 20220331
  Transmission Date: 20220424
  Serious: Yes (Other)
  Sender: FDA-Public Use
  Company Number: US-SAARTEMIS-SAC202010130338

PATIENT
  Age: 74 Year
  Sex: Female

DRUGS (1)
  1. ZANTAC [Suspect]
     Active Substance: RANITIDINE HYDROCHLORIDE
     Indication: Dyspepsia
     Dosage: DOSE: UNKNOWN AT THIS TIME FREQUENCY: OTHER
     Route: 065
     Dates: start: 200201, end: 201901

REACTIONS (4)
  - Lung carcinoma cell type unspecified stage IV [Unknown]
  - Brain neoplasm malignant [Unknown]
  - Ovarian cancer [Unknown]
  - Cerebral disorder [Unknown]

NARRATIVE: CASE EVENT DATE: 20080801
